FAERS Safety Report 24398151 (Version 1)
Quarter: 2024Q4

REPORT INFORMATION
  Report Type: Spontaneous
  Country: CR (occurrence: CR)
  Receive Date: 20241004
  Receipt Date: 20241004
  Transmission Date: 20250115
  Serious: Yes (Other)
  Sender: ORGANON
  Company Number: CR-ORGANON-O2409CRI000284

PATIENT
  Age: 20 Year
  Sex: Female

DRUGS (1)
  1. ETONOGESTREL [Suspect]
     Active Substance: ETONOGESTREL
     Dosage: 1 IMPLANT
     Route: 059
     Dates: start: 2023, end: 2024

REACTIONS (7)
  - Hypothyroidism [Unknown]
  - Amenorrhoea [Unknown]
  - Fatigue [Unknown]
  - Headache [Unknown]
  - Mood altered [Unknown]
  - Blood thyroid stimulating hormone abnormal [Unknown]
  - Mood swings [Unknown]
